FAERS Safety Report 7290157-X (Version None)
Quarter: 2011Q1

REPORT INFORMATION
  Report Type: 
  Country: None (occurrence: None)
  Receive Date: 20110209
  Receipt Date: 20110209
  Transmission Date: 20110831
  Serious: Yes (Other)
  Sender: FDA-Public Use
  Company Number: None

PATIENT
  Sex: Female
  Weight: 65 kg

DRUGS (12)
  1. CIPROFLOXACIN [Concomitant]
  2. ONDANSETRON [Concomitant]
  3. ATGAM [Suspect]
     Indication: PANCYTOPENIA
     Dosage: 40 MG/KG =2600 MG DAILY IV (041)
     Route: 042
     Dates: start: 20110124
  4. DIPHENHYDRAMINE [Concomitant]
  5. DOCUSATE SODIUM [Concomitant]
  6. FLUCONAZOLE [Concomitant]
  7. NEORAL [Suspect]
     Indication: PANCYTOPENIA
     Dosage: 200 MG QAM 300 MG QPM BID PO (047)
     Route: 048
     Dates: start: 20110124, end: 20110125
  8. ACETAMINOPHEN [Concomitant]
  9. PSYLLIUM [Concomitant]
  10. ACYCLOVIR [Concomitant]
  11. METHYLPREDNISOLONE [Concomitant]
  12. ZOLPIDEM [Concomitant]

REACTIONS (3)
  - ASPARTATE AMINOTRANSFERASE INCREASED [None]
  - ALANINE AMINOTRANSFERASE INCREASED [None]
  - BLOOD BILIRUBIN INCREASED [None]
